FAERS Safety Report 6930820-0 (Version None)
Quarter: 2010Q3

REPORT INFORMATION
  Report Type: 
  Country: None (occurrence: None)
  Receive Date: 20100818
  Receipt Date: 20100809
  Transmission Date: 20110219
  Serious: Yes (Other)
  Sender: FDA-Public Use
  Company Number: AU-ABBOTT-10P-008-0663201-00

PATIENT
  Sex: Male

DRUGS (1)
  1. LUCRIN DEPOT INJECTION [Suspect]
     Indication: PROSTATE CANCER

REACTIONS (1)
  - STAPHYLOCOCCAL ABSCESS [None]
